FAERS Safety Report 16217625 (Version 1)
Quarter: 2019Q2

REPORT INFORMATION
  Report Type: Report from Study
  Country: CA (occurrence: CA)
  Receive Date: 20190419
  Receipt Date: 20190419
  Transmission Date: 20190711
  Serious: Yes (Other)
  Sender: FDA-Public Use
  Company Number: CA-SA-2018SA091619

PATIENT
  Age: 27 Year
  Sex: Male

DRUGS (11)
  1. ACICLOVIR [Concomitant]
     Active Substance: ACYCLOVIR
     Indication: PREMEDICATION
     Dosage: 200 MG,BID
     Route: 048
     Dates: start: 20180319
  2. PARACETAMOL [Concomitant]
     Active Substance: ACETAMINOPHEN
     Dosage: UNK UNK,UNK
     Route: 065
     Dates: start: 20180321
  3. BACLOFEN. [Concomitant]
     Active Substance: BACLOFEN
     Dosage: UNK UNK,QD
     Route: 048
  4. DOMPERIDONE [Concomitant]
     Active Substance: DOMPERIDONE
     Dosage: UNK UNK,QD
     Route: 048
  5. RANITIDINE. [Concomitant]
     Active Substance: RANITIDINE
     Indication: PREMEDICATION
     Dosage: 150 MG,UNK
     Route: 048
     Dates: start: 20180319, end: 20180323
  6. RITALIN [Concomitant]
     Active Substance: METHYLPHENIDATE HYDROCHLORIDE
     Dosage: UNK UNK,QD
     Route: 048
  7. METHYLPREDNISOLONE. [Concomitant]
     Active Substance: METHYLPREDNISOLONE
     Indication: PREMEDICATION
     Dosage: 1 G,UNK
     Route: 042
     Dates: start: 20180319, end: 20180323
  8. DIPHENHYDRAMINE HYDROCHLORIDE. [Suspect]
     Active Substance: DIPHENHYDRAMINE HYDROCHLORIDE
     Indication: PREMEDICATION
     Dosage: 50 MG, UNK
     Route: 042
     Dates: start: 20180319, end: 20180323
  9. ALEMTUZUMAB [Suspect]
     Active Substance: ALEMTUZUMAB
     Indication: RELAPSING-REMITTING MULTIPLE SCLEROSIS
     Dosage: 12 MG,QD
     Route: 041
     Dates: start: 20180319, end: 20180323
  10. PARACETAMOL [Concomitant]
     Active Substance: ACETAMINOPHEN
     Indication: PREMEDICATION
     Dosage: 650 MG,PRN
     Route: 048
     Dates: start: 20180319
  11. SYNTHROID [Concomitant]
     Active Substance: LEVOTHYROXINE SODIUM
     Dosage: UNK UNK,QD
     Route: 048

REACTIONS (35)
  - Hypoaesthesia [Not Recovered/Not Resolved]
  - Tachycardia [Recovered/Resolved]
  - Chills [Not Recovered/Not Resolved]
  - Lymphocyte count decreased [Unknown]
  - Infusion site discomfort [Recovered/Resolved]
  - Feeling cold [Recovering/Resolving]
  - Headache [Recovering/Resolving]
  - Heart rate increased [Unknown]
  - Cytokine release syndrome [Unknown]
  - Blood thyroid stimulating hormone decreased [Unknown]
  - Condition aggravated [Unknown]
  - Tremor [Not Recovered/Not Resolved]
  - Specific gravity urine decreased [Unknown]
  - Condition aggravated [Not Recovered/Not Resolved]
  - Discomfort [Not Recovered/Not Resolved]
  - Lymphocyte percentage decreased [Unknown]
  - Thyroxine free [Recovered/Resolved]
  - Dyskinesia [Not Recovered/Not Resolved]
  - Feeling abnormal [Recovered/Resolved]
  - Unevaluable event [Recovered/Resolved]
  - Neuropathy peripheral [Unknown]
  - Multiple sclerosis relapse [Unknown]
  - Burning sensation [Not Recovered/Not Resolved]
  - Fatigue [Not Recovered/Not Resolved]
  - Hyperhidrosis [Unknown]
  - Insomnia [Recovered/Resolved]
  - Gait disturbance [Not Recovered/Not Resolved]
  - Neutrophil percentage increased [Unknown]
  - Weight decreased [Recovering/Resolving]
  - Pyrexia [Recovered/Resolved]
  - Blood thyroid stimulating hormone increased [Not Recovered/Not Resolved]
  - Feeling cold [Not Recovered/Not Resolved]
  - Hypertension [Recovered/Resolved]
  - Nausea [Recovered/Resolved]
  - Thyroglobulin decreased [Recovered/Resolved]

NARRATIVE: CASE EVENT DATE: 201803
